FAERS Safety Report 14970268 (Version 1)
Quarter: 2018Q2

REPORT INFORMATION
  Report Type: Report from Study
  Country: None (occurrence: US)
  Receive Date: 20180604
  Receipt Date: 20180604
  Transmission Date: 20180711
  Serious: Yes (Hospitalization)
  Sender: FDA-Public Use
  Company Number: US-VIFOR (INTERNATIONAL) INC.-VIT-2016-06488

PATIENT
  Sex: Female
  Weight: 68.03 kg

DRUGS (1)
  1. VELTASSA [Suspect]
     Active Substance: PATIROMER
     Indication: BLOOD POTASSIUM INCREASED
     Route: 065

REACTIONS (11)
  - Malaise [Unknown]
  - Blood potassium increased [Recovered/Resolved]
  - Back pain [Unknown]
  - Treatment noncompliance [Unknown]
  - Vomiting [Unknown]
  - Abdominal discomfort [Unknown]
  - Visual acuity reduced [Unknown]
  - Speech disorder [Unknown]
  - Nausea [Unknown]
  - Gait disturbance [Unknown]
  - Vision blurred [Unknown]
